FAERS Safety Report 6236556-6 (Version None)
Quarter: 2009Q2

REPORT INFORMATION
  Report Type: 
  Country: None (occurrence: None)
  Receive Date: 20090619
  Receipt Date: 20090616
  Transmission Date: 20091009
  Serious: Yes (Hospitalization)
  Sender: FDA-Public Use
  Company Number: B0579720A

PATIENT
  Age: 49 Year
  Sex: Male

DRUGS (3)
  1. NABUCOX [Suspect]
     Dosage: 2TAB TWICE PER DAY
     Route: 048
     Dates: start: 20090525, end: 20090527
  2. THIOCOLCHICOSIDE [Suspect]
     Dosage: 4MG TWICE PER DAY
     Route: 048
     Dates: start: 20090525, end: 20090527
  3. ESOMEPRAZOLE MAGNESIUM [Suspect]
     Route: 048
     Dates: start: 20090525, end: 20090527

REACTIONS (2)
  - MUSCLE CONTRACTIONS INVOLUNTARY [None]
  - PRURITUS [None]
